FAERS Safety Report 15614000 (Version 1)
Quarter: 2018Q4

REPORT INFORMATION
  Report Type: Spontaneous
  Country: US (occurrence: US)
  Receive Date: 20181113
  Receipt Date: 20181113
  Transmission Date: 20190205
  Serious: No
  Sender: FDA-Public Use
  Company Number: US-NEUROCRINE BIOSCIENCES INC.-2018NBI03145

PATIENT
  Sex: Female

DRUGS (1)
  1. INGREZZA [Suspect]
     Active Substance: VALBENAZINE
     Indication: TARDIVE DYSKINESIA
     Dates: start: 201808, end: 20181004

REACTIONS (7)
  - Anxiety [Unknown]
  - Depressed mood [Unknown]
  - Tremor [Unknown]
  - Feeling jittery [Unknown]
  - Feeling abnormal [Unknown]
  - Somnolence [Unknown]
  - Insomnia [Unknown]
